FAERS Safety Report 5898146-4 (Version None)
Quarter: 2008Q3

REPORT INFORMATION
  Report Type: 
  Country: None (occurrence: None)
  Receive Date: 20080908
  Receipt Date: 20080707
  Transmission Date: 20090109
  Serious: Yes (Hospitalization)
  Sender: FDA-Public Use
  Company Number: 002#2#2008-00555

PATIENT
  Age: 89 Year
  Sex: Female
  Weight: 54.4316 kg

DRUGS (10)
  1. NEUPRO [Suspect]
     Indication: PARKINSON'S DISEASE
     Dosage: 2MG/24H,1 IN 1 D,TRANSDERMAL
     Route: 062
     Dates: start: 20080101, end: 20080514
  2. REQUIP [Suspect]
     Indication: PARKINSON'S DISEASE
     Dates: start: 20080515, end: 20080521
  3. AMANTADINE HCL [Suspect]
     Dosage: 100 MG,2 IN 2 D,ORAL
     Route: 048
  4. STALEVO 100 [Suspect]
  5. SINEMET [Concomitant]
  6. REMERON [Concomitant]
  7. SEROQUEL [Concomitant]
  8. PAXIL [Concomitant]
  9. LISINOPRIL [Concomitant]
  10. ATENOLOL [Concomitant]

REACTIONS (3)
  - CONDITION AGGRAVATED [None]
  - PARKINSON'S DISEASE [None]
  - PSYCHOTIC DISORDER [None]
